FAERS Safety Report 18265649 (Version 2)
Quarter: 2020Q4

REPORT INFORMATION
  Report Type: Report from Study
  Country: None (occurrence: US)
  Receive Date: 20200914
  Receipt Date: 20201020
  Transmission Date: 20210113
  Serious: Yes (Other)
  Sender: FDA-Public Use
  Company Number: US-ABBVIE-20K-163-3467484-00

PATIENT
  Age: 77 Year
  Sex: Female
  Weight: 90.8 kg

DRUGS (1)
  1. HUMIRA [Suspect]
     Active Substance: ADALIMUMAB
     Indication: RHEUMATOID ARTHRITIS
     Route: 058
     Dates: start: 20170630

REACTIONS (8)
  - Abdominal discomfort [Not Recovered/Not Resolved]
  - Full blood count decreased [Unknown]
  - Pain [Unknown]
  - Vitamin B12 deficiency [Unknown]
  - Blood disorder [Unknown]
  - Fatigue [Unknown]
  - Iron deficiency [Unknown]
  - Dyspnoea [Unknown]

NARRATIVE: CASE EVENT DATE: 202009
